FAERS Safety Report 8327421-9 (Version None)
Quarter: 2012Q2

REPORT INFORMATION
  Report Type: 
  Country: None (occurrence: None)
  Receive Date: 20120424
  Receipt Date: 20120410
  Transmission Date: 20120825
  Serious: Yes (Other)
  Sender: FDA-Public Use
  Company Number: 2012PROUSA01167

PATIENT
  Age: 71 Year
  Sex: Male
  Weight: 92.1 kg

DRUGS (14)
  1. ATENOLOL [Concomitant]
  2. AMLODIPINE BESYLATE [Concomitant]
  3. LIPITOR [Concomitant]
  4. CALCIUM CARBONATE [Concomitant]
  5. FLONASE [Concomitant]
  6. PROVENGE [Suspect]
     Indication: PROSTATE CANCER METASTATIC
     Dosage: 250 ML, SINGLE, INTRAVENOUS
     Route: 042
     Dates: start: 20111208, end: 20111208
  7. PROVENGE [Suspect]
     Indication: PROSTATE CANCER METASTATIC
     Dosage: 250 ML, SINGLE, INTRAVENOUS
     Route: 042
     Dates: start: 20111215, end: 20111215
  8. PROVENGE [Suspect]
     Indication: PROSTATE CANCER METASTATIC
     Dosage: 250 ML, SINGLE, INTRAVENOUS
     Route: 042
     Dates: start: 20111230, end: 20111230
  9. LORATADINE [Concomitant]
  10. JANUMET (METFORMIN HYDROCHLORIDE, SITAGLIPTIN PHOSPHATE MONOHYDRATE) [Concomitant]
  11. CHOLECALCIFEROL (COLECALCIFEROL) [Concomitant]
  12. CITALOPRAM HYDROBROMIDE [Concomitant]
  13. BENICAR [Concomitant]
  14. ASPIRIN [Concomitant]

REACTIONS (7)
  - NEOPLASM PROGRESSION [None]
  - BLOOD ALKALINE PHOSPHATASE INCREASED [None]
  - METASTASES TO BONE [None]
  - ARTHRALGIA [None]
  - MYOSITIS [None]
  - BONE PAIN [None]
  - PROSTATE CANCER [None]
